FAERS Safety Report 25643431 (Version 1)
Quarter: 2025Q3

REPORT INFORMATION
  Report Type: Spontaneous
  Country: US (occurrence: US)
  Receive Date: 20250805
  Receipt Date: 20250805
  Transmission Date: 20251020
  Serious: No
  Sender: CHIESI
  Company Number: US-CHIESI-2024CHF08467

PATIENT

DRUGS (8)
  1. KENGREAL [Suspect]
     Active Substance: CANGRELOR
     Indication: Catheterisation venous
     Route: 042
  2. KENGREAL [Suspect]
     Active Substance: CANGRELOR
     Indication: Off label use
  3. ANCEF [Concomitant]
     Active Substance: CEFAZOLIN SODIUM
     Indication: Product used for unknown indication
  4. ZOFRAN [Concomitant]
     Active Substance: ONDANSETRON HYDROCHLORIDE
     Indication: Product used for unknown indication
  5. VERSED [Concomitant]
     Active Substance: MIDAZOLAM HYDROCHLORIDE
     Indication: Product used for unknown indication
  6. HEPARIN [Concomitant]
     Active Substance: HEPARIN SODIUM
     Indication: Product used for unknown indication
  7. FENTANYL [Concomitant]
     Active Substance: FENTANYL
     Indication: Product used for unknown indication
  8. SODIUM CHLORIDE [Concomitant]
     Active Substance: SODIUM CHLORIDE
     Indication: Product used for unknown indication

REACTIONS (9)
  - Infusion site bruising [Unknown]
  - Infusion site irritation [Unknown]
  - Infusion site swelling [Unknown]
  - Oedema peripheral [Unknown]
  - Administration site indentation [Unknown]
  - Extravasation [Unknown]
  - Rash [Unknown]
  - Off label use [Unknown]
  - Off label use [Unknown]
